FAERS Safety Report 24530372 (Version 2)
Quarter: 2024Q4

REPORT INFORMATION
  Report Type: Report from Study
  Country: CA (occurrence: CA)
  Receive Date: 20241021
  Receipt Date: 20241028
  Transmission Date: 20250115
  Serious: Yes (Other)
  Sender: TAKEDA
  Company Number: CA-TAKEDA-2024TUS008551

PATIENT
  Age: 58 Year
  Sex: Male

DRUGS (2)
  1. VEDOLIZUMAB [Suspect]
     Active Substance: VEDOLIZUMAB
     Indication: Crohn^s disease
     Dosage: 300 MILLIGRAM
     Route: 042
     Dates: start: 20230922
  2. VEDOLIZUMAB [Suspect]
     Active Substance: VEDOLIZUMAB
     Indication: Crohn^s disease
     Dosage: 108 MILLIGRAM, Q2WEEKS
     Route: 058
     Dates: start: 20231229, end: 2024

REACTIONS (10)
  - Ankylosing spondylitis [Unknown]
  - Fatigue [Unknown]
  - COVID-19 [Unknown]
  - Drug ineffective [Unknown]
  - Feeling hot [Unknown]
  - Influenza like illness [Unknown]
  - Asthenia [Unknown]
  - Erythema [Unknown]
  - Chills [Unknown]
  - Sinusitis [Unknown]

NARRATIVE: CASE EVENT DATE: 20231205
